FAERS Safety Report 6399808-5 (Version None)
Quarter: 2009Q4

REPORT INFORMATION
  Report Type: 
  Country: None (occurrence: None)
  Receive Date: 20091013
  Receipt Date: 20091013
  Transmission Date: 20100525
  Serious: No
  Sender: FDA-Public Use
  Company Number: None

PATIENT
  Sex: Female

DRUGS (1)
  1. REGLAN [Suspect]
     Indication: DIABETES MELLITUS
     Dosage: 5MG 3X DAY
     Dates: start: 20010401, end: 20090901

REACTIONS (1)
  - MENINGITIS [None]
